FAERS Safety Report 8910957 (Version 4)
Quarter: 2013Q4

REPORT INFORMATION
  Report Type: Spontaneous
  Country: DE (occurrence: CA)
  Receive Date: 20121116
  Receipt Date: 20131126
  Transmission Date: 20140711
  Serious: Yes (Hospitalization, Other)
  Sender: FDA-Public Use
  Company Number: CA-FRI-1000040413

PATIENT
  Age: 68 Year
  Sex: Female

DRUGS (7)
  1. ROFLUMILAST [Suspect]
     Indication: CHRONIC OBSTRUCTIVE PULMONARY DISEASE
     Dosage: 500 MCG
     Route: 048
     Dates: start: 20120907, end: 20121020
  2. ROFLUMILAST [Suspect]
     Dosage: 500 MCG
     Route: 048
     Dates: start: 201210
  3. ANTIBIOTICS [Concomitant]
     Dates: start: 20130107
  4. ANTIBIOTICS [Concomitant]
     Dates: end: 20130210
  5. SALBUTAMOL [Concomitant]
     Dosage: 1 PUFF EVERY 4 HOURS
  6. SPIRIVA [Concomitant]
     Dosage: 18 MCG
  7. ADVAIR [Concomitant]
     Dosage: 300 MCG

REACTIONS (7)
  - Influenza [Unknown]
  - Lung infection [Unknown]
  - Abdominal discomfort [Unknown]
  - Nausea [Unknown]
  - Headache [Unknown]
  - Hyponatraemia [Recovered/Resolved]
  - Weight decreased [Not Recovered/Not Resolved]
